FAERS Safety Report 20215483 (Version 1)
Quarter: 2021Q4

REPORT INFORMATION
  Report Type: Report from Study
  Country: CA (occurrence: CA)
  Receive Date: 20211222
  Receipt Date: 20211222
  Transmission Date: 20220304
  Serious: Yes (Other)
  Sender: FDA-Public Use
  Company Number: CA-JNJFOC-20211233046

PATIENT
  Age: 31 Year
  Sex: Female

DRUGS (3)
  1. REMICADE [Suspect]
     Active Substance: INFLIXIMAB
     Indication: Colitis ulcerative
     Route: 042
     Dates: start: 20171211
  2. REMICADE [Suspect]
     Active Substance: INFLIXIMAB
     Route: 042
  3. REMICADE [Suspect]
     Active Substance: INFLIXIMAB
     Dosage: THE PATIENT WAS REQUESTING TO GO BACK ON 1 EVERY 4 WEEKS
     Route: 042

REACTIONS (7)
  - Colitis ulcerative [Unknown]
  - Systemic lupus erythematosus [Unknown]
  - Pleuritic pain [Recovered/Resolved]
  - Vision blurred [Unknown]
  - Dizziness [Unknown]
  - Infusion related reaction [Unknown]
  - Blood pressure increased [Unknown]

NARRATIVE: CASE EVENT DATE: 20210601
